FAERS Safety Report 6597726-0 (Version None)
Quarter: 2010Q1

REPORT INFORMATION
  Report Type: 
  Country: None (occurrence: None)
  Receive Date: 20100216
  Receipt Date: 20100127
  Transmission Date: 20100710
  Serious: Yes (Hospitalization)
  Sender: FDA-Public Use
  Company Number: 500691

PATIENT
  Age: 57 Year
  Sex: Female

DRUGS (3)
  1. (CALCIUM FOLINATE) [Suspect]
  2. OXALIPLATIN [Suspect]
  3. FLUOROURACIL [Suspect]

REACTIONS (3)
  - BLOOD CREATININE INCREASED [None]
  - DIARRHOEA [None]
  - NAUSEA [None]
